FAERS Safety Report 8508338-3 (Version None)
Quarter: 2012Q3

REPORT INFORMATION
  Report Type: 
  Country: None (occurrence: None)
  Receive Date: 20120713
  Receipt Date: 20120704
  Transmission Date: 20120928
  Serious: Yes (Other)
  Sender: FDA-Public Use
  Company Number: CA-JNJFOC-20120702519

PATIENT
  Sex: Female
  Weight: 45 kg

DRUGS (20)
  1. CESAMET [Concomitant]
     Route: 065
  2. CITALOPRAM HYDROBROMIDE [Concomitant]
     Route: 065
  3. MULTI-VITAMINS [Concomitant]
     Route: 065
  4. TIMOLOL MALEATE [Concomitant]
     Route: 065
  5. VITAMIN D [Concomitant]
     Route: 065
  6. XALATAN [Concomitant]
     Route: 065
  7. TRAZODONE HYDROCHLORIDE [Concomitant]
     Route: 065
  8. VITAMIN B6 [Concomitant]
     Route: 065
  9. CANNABIS [Concomitant]
     Route: 065
  10. FLAGYL [Concomitant]
     Route: 065
  11. REMERON [Concomitant]
     Route: 065
  12. PANTOPRAZOLE SODIUM [Concomitant]
     Route: 065
  13. L-TRYPTOPHAN [Concomitant]
     Route: 065
  14. AMITRIPTYLINE HCL [Concomitant]
     Route: 065
  15. IMODIUM [Concomitant]
     Route: 065
  16. B100 [Concomitant]
     Route: 065
  17. REMICADE [Suspect]
     Indication: CROHN'S DISEASE
     Route: 042
     Dates: start: 20111130
  18. CODEINE PHOSPHATE [Concomitant]
     Route: 065
  19. CALCIUM [Concomitant]
     Route: 065
  20. IMURAN [Concomitant]
     Route: 065

REACTIONS (2)
  - WEIGHT DECREASED [None]
  - DIARRHOEA [None]
